FAERS Safety Report 6299019-8 (Version None)
Quarter: 2009Q3

REPORT INFORMATION
  Report Type: 
  Country: None (occurrence: None)
  Receive Date: 20090803
  Receipt Date: 20090720
  Transmission Date: 20100115
  Serious: Yes (Other)
  Sender: FDA-Public Use
  Company Number: DSA_34038_2009

PATIENT
  Sex: Female

DRUGS (1)
  1. CARDIZEM [Suspect]
     Indication: DRUG USE FOR UNKNOWN INDICATION
     Dosage: DF

REACTIONS (2)
  - CONVULSION [None]
  - DRUG HYPERSENSITIVITY [None]
